FAERS Safety Report 5805049-X (Version None)
Quarter: 2008Q3

REPORT INFORMATION
  Report Type: 
  Country: None (occurrence: None)
  Receive Date: 20080709
  Receipt Date: 20080627
  Transmission Date: 20090109
  Serious: Yes (Other)
  Sender: FDA-Public Use
  Company Number: AU-PFIZER INC-2008055778

PATIENT
  Sex: Female

DRUGS (2)
  1. CHANTIX [Suspect]
  2. LEXAPRO [Concomitant]

REACTIONS (2)
  - MANIA [None]
  - MOOD SWINGS [None]
